FAERS Safety Report 18451864 (Version 1)
Quarter: 2020Q4

REPORT INFORMATION
  Report Type: Spontaneous
  Country: US (occurrence: US)
  Receive Date: 20201029
  Receipt Date: 20201029
  Transmission Date: 20210114
  Serious: No
  Sender: FDA-Public Use
  Company Number: None

PATIENT

DRUGS (2)
  1. MISOPROSTOL. [Suspect]
     Active Substance: MISOPROSTOL
  2. MIFEPRISTONE [Suspect]
     Active Substance: MIFEPRISTONE

REACTIONS (4)
  - Maternal exposure during pregnancy [None]
  - Product use in unapproved indication [None]
  - Foetal exposure during pregnancy [None]
  - Muscle spasms [None]

NARRATIVE: CASE EVENT DATE: 20200726
